FAERS Safety Report 4920812-5 (Version None)
Quarter: 2006Q1

REPORT INFORMATION
  Report Type: 
  Country: None (occurrence: None)
  Receive Date: 20060113
  Receipt Date: 20050919
  Transmission Date: 20060701
  Serious: No
  Sender: FDA-Public Use
  Company Number: 2005SP002970

PATIENT
  Age: 84 Year
  Sex: Female
  Weight: 58.514 kg

DRUGS (3)
  1. LUNESTA [Suspect]
     Indication: INSOMNIA
     Dosage: 3 MG;HS;ORAL
     Route: 048
     Dates: start: 20050901
  2. LEVOXYL [Concomitant]
  3. RESTORIL [Concomitant]

REACTIONS (3)
  - AGITATION [None]
  - DRUG INEFFECTIVE [None]
  - INSOMNIA [None]
